FAERS Safety Report 16322057 (Version 2)
Quarter: 2019Q2

REPORT INFORMATION
  Report Type: Spontaneous
  Country: US (occurrence: US)
  Receive Date: 20190516
  Receipt Date: 20190626
  Transmission Date: 20190711
  Serious: No
  Sender: FDA-Public Use
  Company Number: US-ELI_LILLY_AND_COMPANY-US201905004651

PATIENT
  Age: 42 Year
  Sex: Female
  Weight: 156 kg

DRUGS (2)
  1. EMGALITY [Suspect]
     Active Substance: GALCANEZUMAB-GNLM
     Indication: MIGRAINE
     Dosage: 120 MG, UNKNOWN
     Route: 058
     Dates: start: 20190430, end: 20190506
  2. CLONAZEPAM. [Concomitant]
     Active Substance: CLONAZEPAM

REACTIONS (5)
  - Hypersensitivity [Recovered/Resolved]
  - Abdominal pain [Unknown]
  - Back pain [Unknown]
  - Pruritus [Unknown]
  - Swelling face [Recovered/Resolved]
